FAERS Safety Report 14302614 (Version 14)
Quarter: 2020Q1

REPORT INFORMATION
  Report Type: Spontaneous
  Country: FR (occurrence: FR)
  Receive Date: 20171219
  Receipt Date: 20200211
  Transmission Date: 20200409
  Serious: Yes (Hospitalization, Congenital Anomaly, Other)
  Sender: FDA-Public Use
  Company Number: FR-AUROBINDO-AUR-APL-2017-45884

PATIENT
  Age: 39 Week
  Sex: Female
  Weight: 2.2 kg

DRUGS (11)
  1. NEVIRAPINE. [Suspect]
     Active Substance: NEVIRAPINE
     Indication: PROPHYLAXIS
     Dosage: UNK, 3 {TRIMESTER}
     Route: 064
     Dates: start: 20170129, end: 20170212
  2. VIRAMUNE [Suspect]
     Active Substance: NEVIRAPINE
     Indication: PROPHYLAXIS AGAINST HIV INFECTION
     Dosage: UNK
     Route: 064
     Dates: start: 20170129, end: 20170212
  3. PREZISTA [Suspect]
     Active Substance: DARUNAVIR ETHANOLATE
     Indication: HIV INFECTION
     Dosage: UNK
     Route: 064
     Dates: start: 20160501, end: 20170129
  4. REYATAZ [Suspect]
     Active Substance: ATAZANAVIR SULFATE
     Indication: HIV INFECTION
     Dosage: UNK
     Route: 064
     Dates: start: 201605, end: 20170129
  5. REYATAZ [Suspect]
     Active Substance: ATAZANAVIR SULFATE
     Indication: HIV INFECTION
     Dosage: UNK, 1 {TRIMESTER}
     Route: 064
     Dates: start: 20160501, end: 20170129
  6. NEVIRAPINE. [Suspect]
     Active Substance: NEVIRAPINE
     Indication: PROPHYLAXIS AGAINST HIV INFECTION
  7. NORVIR [Suspect]
     Active Substance: RITONAVIR
     Indication: HIV INFECTION
     Dosage: 1 DOSAGE FORM, ONCE A DAY, 1 {TRIMESTER}
     Route: 064
     Dates: start: 20160501, end: 20170129
  8. EPZICOM [Suspect]
     Active Substance: ABACAVIR SULFATE\LAMIVUDINE
     Indication: HIV INFECTION
     Dosage: UNK, 1 {TRIMESTER}
     Route: 064
     Dates: start: 20160501, end: 20170129
  9. KIVEXA [Suspect]
     Active Substance: ABACAVIR SULFATE\LAMIVUDINE
     Dosage: UNK
     Route: 064
  10. NORVIR [Suspect]
     Active Substance: RITONAVIR
     Dosage: 100 MILLIGRAM, ONCE A DAY
     Route: 064
     Dates: start: 20160501, end: 20170129
  11. KIVEXA [Suspect]
     Active Substance: ABACAVIR SULFATE\LAMIVUDINE
     Indication: HIV INFECTION
     Dosage: UNK, 1 {TRIMESTER}
     Route: 064
     Dates: start: 20160501, end: 20170129

REACTIONS (14)
  - Supernumerary nipple [Unknown]
  - Foetal growth restriction [Recovering/Resolving]
  - Acoustic stimulation tests abnormal [Unknown]
  - Foetal exposure during pregnancy [Recovered/Resolved]
  - Cerebral ventricle dilatation [Unknown]
  - Dermatitis exfoliative generalised [Not Recovered/Not Resolved]
  - Dilatation ventricular [Unknown]
  - Congenital naevus [Unknown]
  - Low set ears [Unknown]
  - Eosinophilia [Unknown]
  - Breast disorder [Unknown]
  - Left ventricular dilatation [Unknown]
  - Low birth weight baby [Unknown]
  - Erythema [Unknown]

NARRATIVE: CASE EVENT DATE: 20170129
